FAERS Safety Report 6280523-3 (Version None)
Quarter: 2009Q3

REPORT INFORMATION
  Report Type: 
  Country: None (occurrence: None)
  Receive Date: 20090724
  Receipt Date: 20080819
  Transmission Date: 20100115
  Serious: Yes (Other)
  Sender: FDA-Public Use
  Company Number: A0745028A

PATIENT
  Age: 73 Year
  Sex: Male
  Weight: 68.2 kg

DRUGS (9)
  1. AVANDIA [Suspect]
     Dosage: 8MG TWICE PER DAY
     Route: 048
     Dates: start: 20050717, end: 20060901
  2. ALTACE [Concomitant]
  3. VYTORIN [Concomitant]
  4. AGGRENOX [Concomitant]
  5. NORVASC [Concomitant]
  6. LIPITOR [Concomitant]
     Dates: start: 20040904, end: 20060201
  7. PREDNISONE TAB [Concomitant]
     Dates: start: 20060601
  8. METFORMIN HCL [Concomitant]
     Dates: start: 20051013, end: 20080501
  9. GLUCOTROL [Concomitant]
     Dates: start: 20041001, end: 20050501

REACTIONS (1)
  - CEREBROVASCULAR ACCIDENT [None]
